FAERS Safety Report 10450857 (Version 4)
Quarter: 2018Q1

REPORT INFORMATION
  Report Type: Spontaneous
  Country: US (occurrence: US)
  Receive Date: 20140912
  Receipt Date: 20180307
  Transmission Date: 20180508
  Serious: Yes (Hospitalization, Other)
  Sender: FDA-Public Use
  Company Number: US-PFIZER INC-2014222912

PATIENT
  Age: 39 Year
  Sex: Male

DRUGS (15)
  1. TESTOSTERONE CIPIONATE [Suspect]
     Active Substance: TESTOSTERONE
     Indication: ERECTILE DYSFUNCTION
     Dosage: UNK
     Dates: start: 201201, end: 201207
  2. NOVOLOG [Concomitant]
     Active Substance: INSULIN ASPART
     Indication: TYPE 1 DIABETES MELLITUS
     Dosage: UNK
     Dates: start: 201107
  3. ANDROGEL [Suspect]
     Active Substance: TESTOSTERONE
     Indication: ERECTILE DYSFUNCTION
     Dosage: UNK
     Dates: start: 201109, end: 201112
  4. BACTRIM [Concomitant]
     Active Substance: SULFAMETHOXAZOLE\TRIMETHOPRIM
     Indication: ANTIBIOTIC THERAPY
     Dosage: UNK
     Dates: start: 200901
  5. DEPO-TESTOSTERONE [Suspect]
     Active Substance: TESTOSTERONE CYPIONATE
     Indication: HORMONE REPLACEMENT THERAPY
  6. K-PHOS [Concomitant]
     Active Substance: POTASSIUM PHOSPHATE, MONOBASIC
     Indication: BLOOD PHOSPHORUS ABNORMAL
     Dosage: UNK
     Dates: start: 200901
  7. DEPO-TESTOSTERONE [Suspect]
     Active Substance: TESTOSTERONE CYPIONATE
     Indication: BLOOD TESTOSTERONE DECREASED
     Dosage: UNK
     Dates: start: 201201, end: 201207
  8. TESTOSTERONE CIPIONATE [Suspect]
     Active Substance: TESTOSTERONE
     Indication: HORMONE REPLACEMENT THERAPY
  9. ANDROGEL [Suspect]
     Active Substance: TESTOSTERONE
     Indication: HORMONE REPLACEMENT THERAPY
     Dosage: UNK, DAILY
     Dates: start: 201110, end: 201112
  10. TACROLIMUS. [Concomitant]
     Active Substance: TACROLIMUS
     Indication: PROPHYLAXIS AGAINST TRANSPLANT REJECTION
     Dosage: UNK
     Dates: start: 200901
  11. MAGNESIUM OXIDE. [Concomitant]
     Active Substance: MAGNESIUM OXIDE
     Indication: MINERAL SUPPLEMENTATION
     Dosage: UNK
     Dates: start: 200901
  12. DEPO-TESTOSTERONE [Suspect]
     Active Substance: TESTOSTERONE CYPIONATE
     Indication: ERECTILE DYSFUNCTION
     Dosage: UNK, EVERY TWO TO THREE WEEKS
     Dates: start: 20120711
  13. TESTOSTERONE CIPIONATE [Suspect]
     Active Substance: TESTOSTERONE
     Indication: BLOOD TESTOSTERONE DECREASED
     Dosage: UNK, EVERY TWO TO THREE WEEKS
     Dates: start: 20120105
  14. PREDNISONE. [Concomitant]
     Active Substance: PREDNISONE
     Indication: INFLAMMATION
     Dosage: UNK
     Dates: start: 200901
  15. LANTUS [Concomitant]
     Active Substance: INSULIN GLARGINE
     Indication: TYPE 1 DIABETES MELLITUS
     Dosage: UNK
     Dates: start: 201107

REACTIONS (5)
  - Myocardial infarction [Unknown]
  - Anxiety [Unknown]
  - Depression [Unknown]
  - Fatigue [Unknown]
  - Sleep disorder [Unknown]

NARRATIVE: CASE EVENT DATE: 20120723
